FAERS Safety Report 6412520-9 (Version None)
Quarter: 2009Q4

REPORT INFORMATION
  Report Type: 
  Country: None (occurrence: None)
  Receive Date: 20091023
  Receipt Date: 20090626
  Transmission Date: 20100525
  Serious: No
  Sender: FDA-Public Use
  Company Number: US-BRISTOL-MYERS SQUIBB COMPANY-14666226

PATIENT
  Age: 82 Year
  Sex: Female
  Weight: 79 kg

DRUGS (4)
  1. KENALOG-40 [Suspect]
     Indication: PAIN
     Dosage: KENALOG 40MG/ML FOR 2ML: LOT #9I50509:EXP DATE-7/10
     Route: 008
     Dates: start: 20090603
  2. ISOVUE-128 [Suspect]
     Indication: PAIN
     Dosage: GIVEN ONE TIME DOSE; ISOVUE-300
     Route: 008
     Dates: start: 20090603
  3. BUPIVACAINE [Suspect]
     Dosage: BUPIVACAINE 0.5%
     Dates: start: 20090603
  4. LIDOCAINE [Suspect]
     Dates: start: 20090603

REACTIONS (4)
  - ASTHENIA [None]
  - FEELING ABNORMAL [None]
  - FLUSHING [None]
  - VISION BLURRED [None]
